FAERS Safety Report 6891305-3 (Version None)
Quarter: 2010Q3

REPORT INFORMATION
  Report Type: 
  Country: None (occurrence: None)
  Receive Date: 20100731
  Receipt Date: 20090727
  Transmission Date: 20110219
  Serious: No
  Sender: FDA-Public Use
  Company Number: US-PFIZER INC-2009248817

PATIENT
  Sex: Female
  Weight: 56.689 kg

DRUGS (2)
  1. LIPITOR [Suspect]
     Indication: BLOOD CHOLESTEROL INCREASED
     Dosage: 40 MG, 1X/DAY
     Route: 048
     Dates: start: 20010101
  2. GEMFIBROZIL [Concomitant]
     Dosage: UNK
     Route: 048

REACTIONS (1)
  - MUSCULAR WEAKNESS [None]
